FAERS Safety Report 20330360 (Version 4)
Quarter: 2022Q3

REPORT INFORMATION
  Report Type: Other
  Country: KR (occurrence: None)
  Receive Date: 20220113
  Receipt Date: 20220919
  Transmission Date: 20221027
  Serious: Yes (Hospitalization, Other)
  Sender: FDA-Public Use
  Company Number: KR-ROCHE-2997445

PATIENT
  Age: 70 Year
  Sex: Female
  Weight: 48.1 kg

DRUGS (7)
  1. ATEZOLIZUMAB [Suspect]
     Active Substance: ATEZOLIZUMAB
     Indication: Hepatocellular carcinoma
     Dosage: FURTHER DOSE ON 29/NOV/2021, 20/DEC/2021, 10/JAN/2022
     Route: 041
     Dates: start: 20211105
  2. BEVACIZUMAB [Suspect]
     Active Substance: BEVACIZUMAB
     Indication: Hepatocellular carcinoma
     Dosage: FURTHER DOSE ON 29/NOV/2021, 20/DEC/2021,10/JAN/2022
     Route: 042
     Dates: start: 20211105
  3. URSODIOL [Concomitant]
     Active Substance: URSODIOL
     Dates: start: 20211201
  4. BARACLUDE [Concomitant]
     Active Substance: ENTECAVIR
     Indication: Hepatitis B
  5. GODEX (SOUTH KOREA) [Concomitant]
     Dates: start: 20211206
  6. NEXIUM [Concomitant]
     Active Substance: ESOMEPRAZOLE MAGNESIUM
     Indication: Chronic gastritis
     Dates: start: 20211202
  7. NAXEN-F [Concomitant]
     Dates: start: 20211221

REACTIONS (9)
  - Pneumonitis [Recovered/Resolved]
  - Pyrexia [Recovered/Resolved]
  - Angina pectoris [Recovered/Resolved]
  - Rash [Recovered/Resolved]
  - Central hypothyroidism [Recovered/Resolved]
  - Insomnia [Recovered/Resolved]
  - Constipation [Recovered/Resolved]
  - Urine output decreased [Recovered/Resolved]
  - Rhinitis allergic [Recovered/Resolved]

NARRATIVE: CASE EVENT DATE: 20211111
